FAERS Safety Report 6824955-0 (Version None)
Quarter: 2010Q3

REPORT INFORMATION
  Report Type: 
  Country: None (occurrence: None)
  Receive Date: 20100708
  Receipt Date: 20061130
  Transmission Date: 20110219
  Serious: No
  Sender: FDA-Public Use
  Company Number: US-PFIZER INC-2006151395

PATIENT
  Sex: Female
  Weight: 77.11 kg

DRUGS (3)
  1. CHANTIX [Suspect]
     Indication: SMOKING CESSATION THERAPY
     Route: 048
     Dates: start: 20061129
  2. CYMBALTA [Concomitant]
  3. TERIPARATIDE [Concomitant]
     Indication: OSTEOPOROSIS
     Route: 058

REACTIONS (1)
  - RETCHING [None]
